FAERS Safety Report 4996051-9 (Version None)
Quarter: 2006Q2

REPORT INFORMATION
  Report Type: 
  Country: None (occurrence: None)
  Receive Date: 20060508
  Receipt Date: 20060126
  Transmission Date: 20061013
  Serious: Yes (Hospitalization)
  Sender: FDA-Public Use
  Company Number: US-MERCK-0601USA03587

PATIENT
  Sex: Female
  Weight: 80 kg

DRUGS (13)
  1. VIOXX [Suspect]
     Indication: BACK PAIN
     Route: 048
     Dates: start: 20000426, end: 20011224
  2. VIOXX [Suspect]
     Indication: PAIN IN EXTREMITY
     Route: 048
     Dates: start: 20000426, end: 20011224
  3. PREMARIN [Concomitant]
     Route: 065
  4. CALCIUM (UNSPECIFIED) [Concomitant]
     Route: 065
  5. AMOXICILLIN [Concomitant]
     Route: 065
  6. RHINOCORT [Concomitant]
     Route: 065
  7. MAXAIR [Concomitant]
     Route: 065
  8. PREVACID [Concomitant]
     Route: 065
  9. NORFLEX [Concomitant]
     Route: 065
  10. DARVOCET [Concomitant]
     Route: 065
  11. FLUOCINONIDE [Concomitant]
     Route: 065
  12. PROPOXYPHENE HYDROCHLORIDE [Concomitant]
     Route: 065
  13. LEVSINEX TIMECAPS [Concomitant]
     Route: 065

REACTIONS (6)
  - CEREBROVASCULAR ACCIDENT [None]
  - DYSPNOEA [None]
  - HYPERTENSION [None]
  - OEDEMA [None]
  - PULMONARY HYPERTENSION [None]
  - SLEEP APNOEA SYNDROME [None]
